FAERS Safety Report 7817450-3 (Version None)
Quarter: 2011Q4

REPORT INFORMATION
  Report Type: 
  Country: None (occurrence: None)
  Receive Date: 20111017
  Receipt Date: 20111011
  Transmission Date: 20120403
  Serious: Yes (Other)
  Sender: FDA-Public Use
  Company Number: DZ-ROCHE-1004743

PATIENT
  Age: 50 Year
  Sex: Female

DRUGS (3)
  1. PACLITAXEL [Suspect]
     Indication: LUNG NEOPLASM MALIGNANT
     Dates: start: 20110615, end: 20110727
  2. CARBOPLATIN [Suspect]
     Indication: LUNG NEOPLASM MALIGNANT
     Dates: start: 20110615, end: 20110727
  3. BEVACIZUMAB [Suspect]
     Indication: LUNG NEOPLASM MALIGNANT
     Dates: start: 20110615, end: 20110727

REACTIONS (1)
  - RENAL FAILURE ACUTE [None]
